FAERS Safety Report 7771731-0 (Version None)
Quarter: 2011Q3

REPORT INFORMATION
  Report Type: 
  Country: None (occurrence: None)
  Receive Date: 20110922
  Receipt Date: 20100920
  Transmission Date: 20111222
  Serious: No
  Sender: FDA-Public Use
  Company Number: US-ASTRAZENECA-2010SE44110

PATIENT
  Sex: Female
  Weight: 67.1 kg

DRUGS (2)
  1. SEROQUEL XR [Suspect]
     Indication: BIPOLAR I DISORDER
     Route: 048
  2. SEROQUEL XR [Suspect]
     Route: 048
     Dates: start: 20100101, end: 20100901

REACTIONS (3)
  - SOMNOLENCE [None]
  - FEELING ABNORMAL [None]
  - FATIGUE [None]
